FAERS Safety Report 7476238-6 (Version None)
Quarter: 2011Q2

REPORT INFORMATION
  Report Type: 
  Country: None (occurrence: None)
  Receive Date: 20110512
  Receipt Date: 20110412
  Transmission Date: 20111010
  Serious: Yes (Hospitalization)
  Sender: FDA-Public Use
  Company Number: GB-ASTRAZENECA-2011SE21696

PATIENT
  Age: 47 Year
  Sex: Male

DRUGS (8)
  1. ESOMEPRAZOLE MAGNESIUM [Suspect]
     Route: 048
     Dates: end: 20110301
  2. TRAMADOL HCL [Concomitant]
  3. COLOFAC [Concomitant]
  4. RAMIPRIL [Concomitant]
  5. ESOMEPRAZOLE MAGNESIUM [Suspect]
     Indication: BARRETT'S OESOPHAGUS
     Route: 048
     Dates: start: 20081219
  6. BUSCOPAN [Concomitant]
  7. FLOXITINE [Concomitant]
  8. MOTILIUM [Concomitant]

REACTIONS (1)
  - PNEUMONIA ASPIRATION [None]
